FAERS Safety Report 11870083 (Version 1)
Quarter: 2015Q4

REPORT INFORMATION
  Report Type: Spontaneous
  Country: US (occurrence: None)
  Receive Date: 20151223
  Receipt Date: 20151223
  Transmission Date: 20160305
  Serious: Yes (Life-Threatening)
  Sender: FDA-Public Use
  Company Number: None

PATIENT
  Age: 61 Year
  Sex: Female
  Weight: 61.8 kg

DRUGS (1)
  1. HYDROXYCHLOROQUINE 200MG [Suspect]
     Active Substance: HYDROXYCHLOROQUINE
     Indication: RHEUMATOID ARTHRITIS
     Dosage: 1 TAB
     Route: 048
     Dates: start: 20151221

REACTIONS (4)
  - Ventricular hypokinesia [None]
  - Cardiomyopathy [None]
  - QRS axis abnormal [None]
  - Incorrect drug administration duration [None]

NARRATIVE: CASE EVENT DATE: 20151221
